FAERS Safety Report 14896414 (Version 2)
Quarter: 2018Q3

REPORT INFORMATION
  Report Type: Spontaneous
  Country: US (occurrence: US)
  Receive Date: 20180515
  Receipt Date: 20180905
  Transmission Date: 20181010
  Serious: Yes (Other)
  Sender: FDA-Public Use
  Company Number: US-SA-2018SA134835

PATIENT
  Age: 38 Year
  Sex: Female
  Weight: 127 kg

DRUGS (1)
  1. ALLEGRA D?12 HOUR [Suspect]
     Active Substance: FEXOFENADINE HYDROCHLORIDE\PSEUDOEPHEDRINE HYDROCHLORIDE
     Indication: HYPERSENSITIVITY
     Dosage: 1 DF, 1X
     Route: 048
     Dates: start: 20180508, end: 20180508

REACTIONS (6)
  - Coeliac disease [Unknown]
  - Abdominal discomfort [Recovered/Resolved]
  - Abdominal distension [Recovered/Resolved]
  - Diarrhoea [Recovered/Resolved]
  - Abdominal pain [Recovered/Resolved]
  - Abnormal faeces [Recovered/Resolved]

NARRATIVE: CASE EVENT DATE: 20180508
